FAERS Safety Report 16087023 (Version 5)
Quarter: 2019Q3

REPORT INFORMATION
  Report Type: Report from Study
  Country: None (occurrence: US)
  Receive Date: 20190319
  Receipt Date: 20190704
  Transmission Date: 20191004
  Serious: Yes (Hospitalization, Other)
  Sender: FDA-Public Use
  Company Number: US-ABBVIE-19K-163-2688103-00

PATIENT
  Age: 59 Year
  Sex: Female

DRUGS (2)
  1. HUMIRA [Suspect]
     Active Substance: ADALIMUMAB
     Indication: CROHN^S DISEASE
     Route: 058
  2. HUMIRA [Suspect]
     Active Substance: ADALIMUMAB
     Indication: UVEITIS

REACTIONS (19)
  - Fatigue [Unknown]
  - Visual impairment [Unknown]
  - Abdominal pain [Unknown]
  - Pain in extremity [Unknown]
  - Eye inflammation [Unknown]
  - Adverse drug reaction [Unknown]
  - Memory impairment [Unknown]
  - Photosensitivity reaction [Unknown]
  - Nervousness [Unknown]
  - Blindness unilateral [Unknown]
  - Eye discharge [Unknown]
  - Small intestinal obstruction [Unknown]
  - Eye operation [Unknown]
  - Rash [Unknown]
  - Glassy eyes [Unknown]
  - Seizure [Unknown]
  - Gastrooesophageal reflux disease [Unknown]
  - Coccidioidomycosis [Unknown]
  - Dehydration [Unknown]

NARRATIVE: CASE EVENT DATE: 2018
